FAERS Safety Report 11628311 (Version 1)
Quarter: 2015Q4

REPORT INFORMATION
  Report Type: Spontaneous
  Country: US (occurrence: US)
  Receive Date: 20151014
  Receipt Date: 20151014
  Transmission Date: 20160304
  Serious: Yes (Death, Hospitalization)
  Sender: FDA-Public Use
  Company Number: US-MYLANLABS-2015M1034595

PATIENT

DRUGS (1)
  1. LOPERAMIDE [Suspect]
     Active Substance: LOPERAMIDE
     Indication: PRODUCT USED FOR UNKNOWN INDICATION
     Route: 048

REACTIONS (8)
  - Vomiting [Unknown]
  - Hypovolaemic shock [Unknown]
  - Haemodynamic instability [Unknown]
  - Nausea [Unknown]
  - Abdominal pain [Recovering/Resolving]
  - Cardio-respiratory arrest [Fatal]
  - Long QT syndrome [Recovered/Resolved]
  - Drug abuse [Unknown]
